FAERS Safety Report 9272609 (Version 1)
Quarter: 2013Q2

REPORT INFORMATION
  Report Type: Spontaneous
  Country: US (occurrence: US)
  Receive Date: 20130506
  Receipt Date: 20130506
  Transmission Date: 20140414
  Serious: No
  Sender: FDA-Public Use
  Company Number: US-ASTRAZENECA-2013SE01207

PATIENT
  Age: 64 Year
  Sex: Female

DRUGS (7)
  1. PRILOSEC OTC [Suspect]
     Route: 048
     Dates: start: 20121212, end: 20121221
  2. METOPOL [Concomitant]
  3. BABY ASPIRIN [Concomitant]
  4. DIURETICS [Concomitant]
  5. AZOPT [Concomitant]
  6. LUMIGAN [Concomitant]
  7. ALPHAGAN [Concomitant]

REACTIONS (6)
  - Skin disorder [Recovered/Resolved]
  - Chest pain [Recovered/Resolved]
  - Eructation [Recovered/Resolved]
  - Pruritus [Recovered/Resolved]
  - Alopecia [Recovered/Resolved]
  - Abdominal pain upper [Recovered/Resolved]
